FAERS Safety Report 22226474 (Version 1)
Quarter: 2023Q2

REPORT INFORMATION
  Report Type: Spontaneous
  Country: CA (occurrence: CA)
  Receive Date: 20230419
  Receipt Date: 20230419
  Transmission Date: 20230721
  Serious: Yes (Other)
  Sender: FDA-Public Use
  Company Number: CA-ORGANON-O2304CAN001709

PATIENT
  Age: 2 Year
  Sex: Female

DRUGS (1)
  1. SINGULAIR [Suspect]
     Active Substance: MONTELUKAST SODIUM
     Indication: Prophylaxis
     Dosage: 1 SACHET,1 EVERY 1 DAYS (DOSAGE FORM : NOT SPECIFIED)
     Route: 065

REACTIONS (5)
  - Aggression [Unknown]
  - Crying [Unknown]
  - Poor quality sleep [Unknown]
  - Psychotic disorder [Unknown]
  - Screaming [Unknown]
